FAERS Safety Report 8394698-3 (Version None)
Quarter: 2012Q2

REPORT INFORMATION
  Report Type: 
  Country: None (occurrence: None)
  Receive Date: 20120530
  Receipt Date: 20120524
  Transmission Date: 20120825
  Serious: Yes (Life-Threatening, Disabling)
  Sender: FDA-Public Use
  Company Number: US-PFIZER INC-2012126278

PATIENT

DRUGS (1)
  1. CLEOCIN HYDROCHLORIDE [Suspect]
     Dosage: UNK
     Dates: start: 19830101, end: 19840101

REACTIONS (2)
  - MALAISE [None]
  - ADVERSE DRUG REACTION [None]
